FAERS Safety Report 23030291 (Version 2)
Quarter: 2023Q4

REPORT INFORMATION
  Report Type: Other
  Country: CA (occurrence: CA)
  Receive Date: 20231005
  Receipt Date: 20231005
  Transmission Date: 20240110
  Serious: Yes (Other)
  Sender: FDA-Public Use
  Company Number: CA-APOTEX-2023AP012865

PATIENT

DRUGS (3)
  1. ESCITALOPRAM [Interacting]
     Active Substance: ESCITALOPRAM OXALATE
     Indication: Parkinsonism
     Dosage: UNK
     Route: 065
  2. TRAZODONE [Interacting]
     Active Substance: TRAZODONE HYDROCHLORIDE
     Indication: Parkinsonism
     Dosage: UNK
     Route: 065
  3. RASAGILINE [Interacting]
     Active Substance: RASAGILINE
     Indication: Parkinsonism
     Dosage: UNK
     Route: 065

REACTIONS (4)
  - Drug interaction [Unknown]
  - Product used for unknown indication [Unknown]
  - Inappropriate antidiuretic hormone secretion [Unknown]
  - Serotonin syndrome [Unknown]
